FAERS Safety Report 23306511 (Version 1)
Quarter: 2023Q4

REPORT INFORMATION
  Report Type: Spontaneous
  Country: US (occurrence: US)
  Receive Date: 20231218
  Receipt Date: 20231218
  Transmission Date: 20240110
  Serious: Yes (Other)
  Sender: FDA-Public Use
  Company Number: US-AUROBINDO-AUR-APL-2023-049855

PATIENT
  Age: 63 Year
  Sex: Male
  Weight: 95.2 kg

DRUGS (1)
  1. FINASTERIDE [Suspect]
     Active Substance: FINASTERIDE
     Indication: Prostatomegaly
     Dosage: ONCE A DAY
     Route: 065

REACTIONS (3)
  - Erectile dysfunction [Unknown]
  - Sexual dysfunction [Unknown]
  - Atrophy [Unknown]
